FAERS Safety Report 12560657 (Version 1)
Quarter: 2016Q3

REPORT INFORMATION
  Report Type: Spontaneous
  Country: US (occurrence: US)
  Receive Date: 20160715
  Receipt Date: 20160715
  Transmission Date: 20161109
  Serious: No
  Sender: FDA-Public Use
  Company Number: US-JNJFOC-20160615516

PATIENT
  Sex: Male

DRUGS (2)
  1. MENS ROGAINE EXTRA STRENGTH [Suspect]
     Active Substance: MINOXIDIL
     Route: 048
  2. MENS ROGAINE EXTRA STRENGTH [Suspect]
     Active Substance: MINOXIDIL
     Indication: ACCIDENTAL EXPOSURE TO PRODUCT
     Route: 048
     Dates: start: 20160615, end: 20160615

REACTIONS (1)
  - Accidental exposure to product [Unknown]
